FAERS Safety Report 24771229 (Version 1)
Quarter: 2024Q4

REPORT INFORMATION
  Report Type: Spontaneous
  Country: US (occurrence: US)
  Receive Date: 20241224
  Receipt Date: 20241224
  Transmission Date: 20250115
  Serious: No
  Sender: AZURITY PHARMACEUTICALS
  Company Number: US-AZURITY PHARMACEUTICALS, INC.-AZR202410-001021

PATIENT
  Age: 4 Year
  Sex: Male

DRUGS (2)
  1. THYQUIDITY [Suspect]
     Active Substance: LEVOTHYROXINE SODIUM
     Indication: Adrenal suppression
     Dosage: 60 MICROGRAM, QD
     Route: 048
  2. THYQUIDITY [Suspect]
     Active Substance: LEVOTHYROXINE SODIUM
     Indication: Autoimmune thyroiditis

REACTIONS (2)
  - Blood thyroid stimulating hormone increased [Unknown]
  - Product dispensing error [Unknown]
